FAERS Safety Report 8322463-1 (Version None)
Quarter: 2012Q2

REPORT INFORMATION
  Report Type: 
  Country: None (occurrence: None)
  Receive Date: 20120430
  Receipt Date: 20100106
  Transmission Date: 20120825
  Serious: No
  Sender: FDA-Public Use
  Company Number: US-TEVA-2010000080

PATIENT
  Sex: Female
  Weight: 66.738 kg

DRUGS (4)
  1. NUVIGIL [Suspect]
     Indication: MULTIPLE SCLEROSIS
     Dosage: 150 MILLIGRAM;
     Route: 048
     Dates: start: 20091201, end: 20091201
  2. BETASERON [Concomitant]
  3. VESICARE [Concomitant]
     Dates: start: 20080101
  4. OMEPRAZOLE [Concomitant]

REACTIONS (1)
  - INSOMNIA [None]
